FAERS Safety Report 5308962-5 (Version None)
Quarter: 2007Q2

REPORT INFORMATION
  Report Type: 
  Country: None (occurrence: None)
  Receive Date: 20070426
  Receipt Date: 20070424
  Transmission Date: 20071010
  Serious: Yes (Hospitalization)
  Sender: FDA-Public Use
  Company Number: US-BOEHRINGER INGELHEIM PHARMACEUTICALS, INC.-2007-BP-05599BP

PATIENT
  Sex: Female

DRUGS (5)
  1. SPIRIVA [Suspect]
     Indication: CHRONIC OBSTRUCTIVE PULMONARY DISEASE
     Route: 055
     Dates: start: 20060401, end: 20061001
  2. SPIRIVA [Suspect]
     Indication: ASTHMA
  3. DIOVAN [Concomitant]
  4. LANTUS [Concomitant]
  5. NOVOLOG REGULAR [Concomitant]

REACTIONS (5)
  - COUGH [None]
  - FLUID OVERLOAD [None]
  - NEURALGIA [None]
  - OEDEMA PERIPHERAL [None]
  - RENAL FAILURE [None]
